FAERS Safety Report 7763760-8 (Version None)
Quarter: 2011Q3

REPORT INFORMATION
  Report Type: 
  Country: None (occurrence: None)
  Receive Date: 20110916
  Receipt Date: 20110830
  Transmission Date: 20111222
  Serious: Yes (Hospitalization, Other)
  Sender: FDA-Public Use
  Company Number: 2011SP031156

PATIENT
  Age: 64 Year
  Sex: Female
  Weight: 53 kg

DRUGS (3)
  1. CAPTOPRIL [Concomitant]
  2. PEG-INTRON [Suspect]
     Indication: HEPATITIS C
     Dosage: 80 MCG;QW;SC
     Route: 058
     Dates: start: 20101201
  3. RIBAVIRIN [Suspect]
     Indication: HEPATITIS C
     Dosage: QD;PO
     Route: 048
     Dates: start: 20110101

REACTIONS (13)
  - VOMITING [None]
  - CONVULSION [None]
  - WEIGHT DECREASED [None]
  - SEPSIS [None]
  - MULTI-ORGAN FAILURE [None]
  - SYNCOPE [None]
  - ANAEMIA [None]
  - GENERAL PHYSICAL HEALTH DETERIORATION [None]
  - EAR INFECTION [None]
  - BLOOD GLUCOSE INCREASED [None]
  - EAR PAIN [None]
  - PRURITUS [None]
  - ASTHENIA [None]
